FAERS Safety Report 4613297-X (Version None)
Quarter: 2005Q1

REPORT INFORMATION
  Report Type: 
  Country: None (occurrence: None)
  Receive Date: 20050315
  Receipt Date: 20050302
  Transmission Date: 20050727
  Serious: Yes (Hospitalization)
  Sender: FDA-Public Use
  Company Number: 2005PK00293

PATIENT
  Age: 77 Year
  Sex: Female
  Weight: 85 kg

DRUGS (6)
  1. FASLODEX [Suspect]
     Indication: BREAST CANCER
     Dosage: 250 MG DAILY IM
     Route: 030
     Dates: start: 20041103, end: 20050104
  2. MODIP ^ASTRA^ [Concomitant]
  3. ALLOPURINOL 100 [Concomitant]
  4. BELOC ZOK [Concomitant]
  5. DELIX [Concomitant]
  6. DELIX 10 PROTECT [Concomitant]

REACTIONS (4)
  - DEEP VEIN THROMBOSIS [None]
  - DIASTOLIC DYSFUNCTION [None]
  - ECHOCARDIOGRAM ABNORMAL [None]
  - PULMONARY EMBOLISM [None]
